FAERS Safety Report 7911585-2 (Version None)
Quarter: 2011Q4

REPORT INFORMATION
  Report Type: 
  Country: None (occurrence: None)
  Receive Date: 20111114
  Receipt Date: 20111107
  Transmission Date: 20120403
  Serious: Yes (Other)
  Sender: FDA-Public Use
  Company Number: US-AMGEN-USASP2011058217

PATIENT
  Age: 48 Year
  Sex: Female

DRUGS (1)
  1. ENBREL [Suspect]
     Indication: ANKYLOSING SPONDYLITIS
     Dosage: 50 MG, QWK
     Dates: start: 20091022, end: 20111020

REACTIONS (6)
  - NASOPHARYNGITIS [None]
  - SINUSITIS [None]
  - DEVICE DISLOCATION [None]
  - ANKYLOSING SPONDYLITIS [None]
  - POST PROCEDURAL HAEMORRHAGE [None]
  - HEPATIC ENZYME INCREASED [None]
